FAERS Safety Report 8296489 (Version 2)
Quarter: 2012Q4

REPORT INFORMATION
  Report Type: 
  Country: US (occurrence: US)
  Receive Date: 20111216
  Receipt Date: 20121218
  Transmission Date: 20130627
  Serious: Yes (Other)
  Sender: FDA-Public Use
  Company Number: US-BRISTOL-MYERS SQUIBB COMPANY-16204588

PATIENT
  Age: 21 Year
  Sex: Female
  Weight: 68 kg

DRUGS (5)
  1. ABILIFY [Suspect]
     Indication: AFFECTIVE DISORDER
     Dosage: 15Fb07-5mg,18Mr07:10mg,23My07:15mg,15Oc07:20mg,08Mar11:10to5mg,5-2.5mg,2.5to1mg,restart1mg 2mg5mg
     Route: 048
     Dates: start: 20070215
  2. LAMICTAL [Concomitant]
  3. NEXIUM [Concomitant]
  4. CLARITIN [Concomitant]
  5. TENEX [Concomitant]

REACTIONS (2)
  - Dyskinesia [Recovering/Resolving]
  - Weight increased [Recovering/Resolving]
